FAERS Safety Report 9306590 (Version 3)
Quarter: 2013Q3

REPORT INFORMATION
  Report Type: Spontaneous
  Country: US (occurrence: None)
  Receive Date: 20130221
  Receipt Date: 20130815
  Transmission Date: 20140515
  Serious: Yes (Other)
  Sender: FDA-Public Use
  Company Number: ADR-2012-00293

PATIENT
  Sex: Male
  Weight: 35.38 kg

DRUGS (2)
  1. LIORESAL [Suspect]
     Indication: MUSCLE SPASTICITY
     Dosage: 660.9 MCG/DAY?
  2. LIORESAL [Suspect]
     Dosage: 660.9 MCG/DAY?

REACTIONS (23)
  - Underdose [None]
  - Pain [None]
  - Pruritus [None]
  - Discomfort [None]
  - Muscle twitching [None]
  - Dyskinesia [None]
  - Aphasia [None]
  - Implant site pain [None]
  - Implant site pain [None]
  - Poor quality sleep [None]
  - Withdrawal syndrome [None]
  - Muscle spasticity [None]
  - Muscle rigidity [None]
  - Dental caries [None]
  - Abdominal pain [None]
  - Dyskinesia [None]
  - Implant site pruritus [None]
  - No therapeutic response [None]
  - Drug withdrawal syndrome [None]
  - Grimacing [None]
  - Implant site scar [None]
  - Implant site erythema [None]
  - Scoliosis [None]
